FAERS Safety Report 6781023-4 (Version None)
Quarter: 2010Q2

REPORT INFORMATION
  Report Type: 
  Country: None (occurrence: None)
  Receive Date: 20100617
  Receipt Date: 20100617
  Transmission Date: 20101027
  Serious: Yes (Hospitalization)
  Sender: FDA-Public Use
  Company Number: None

PATIENT
  Sex: Female
  Weight: 50 kg

DRUGS (6)
  1. CARBOPLATIN [Suspect]
     Dosage: 1500 MG
     Dates: end: 20100511
  2. ERBITUX [Suspect]
     Dosage: 2574 MG
     Dates: end: 20100525
  3. TAXOL [Suspect]
     Dosage: 624 MG
     Dates: end: 20100511
  4. ALBUTEROL SULATE [Concomitant]
  5. HYDROCODONE [Concomitant]
  6. MUCINEX [Concomitant]

REACTIONS (2)
  - BRONCHIAL OBSTRUCTION [None]
  - DYSPNOEA [None]
